FAERS Safety Report 8806459 (Version 1)
Quarter: 2012Q4

REPORT INFORMATION
  Report Type: Spontaneous
  Country: US (occurrence: None)
  Receive Date: 20120918
  Receipt Date: 20120918
  Transmission Date: 20130627
  Serious: Yes (Other)
  Sender: FDA-Public Use
  Company Number: NGX_01367_2012

PATIENT
  Sex: Male
  Weight: 90.72 kg

DRUGS (7)
  1. QUTENZA [Suspect]
     Indication: POST HERPETIC NEURALGIA
     Dosage: (4 DF, [Two patches on the front his belly, and two on his back] Topical)
     Dates: start: 201206, end: 201206
  2. MULTIVITAMIN [Concomitant]
  3. NIASPAN [Concomitant]
  4. TAMSULOSIN [Concomitant]
  5. DIOVAN [Concomitant]
  6. GLIMEPIRIDE [Concomitant]
  7. JANUVIA [Concomitant]

REACTIONS (3)
  - Neoplasm malignant [None]
  - Application site pain [None]
  - Drug ineffective [None]
